FAERS Safety Report 18384050 (Version 3)
Quarter: 2020Q4

REPORT INFORMATION
  Report Type: Spontaneous
  Country: AR (occurrence: AR)
  Receive Date: 20201014
  Receipt Date: 20201104
  Transmission Date: 20210114
  Serious: Yes (Other)
  Sender: FDA-Public Use
  Company Number: AR-LUNDBECK-DKLU3022298

PATIENT
  Age: 9 Year
  Sex: Male

DRUGS (2)
  1. KARIDIUM [CLOBAZAM] [Suspect]
     Active Substance: CLOBAZAM
     Indication: INAPPROPRIATE ANTIDIURETIC HORMONE SECRETION
     Route: 048
     Dates: start: 2009
  2. HYDROCORTISONE. [Suspect]
     Active Substance: HYDROCORTISONE
     Indication: INAPPROPRIATE ANTIDIURETIC HORMONE SECRETION
     Route: 048
     Dates: start: 2009

REACTIONS (7)
  - Extra dose administered [Unknown]
  - Drug dependence [Unknown]
  - Cyanosis [Recovered/Resolved]
  - Accidental exposure to product by child [Unknown]
  - Feeling abnormal [Recovered/Resolved]
  - Hypersomnia [Recovered/Resolved]
  - Diplopia [Recovered/Resolved]

NARRATIVE: CASE EVENT DATE: 20201004
